FAERS Safety Report 4774291-1 (Version None)
Quarter: 2005Q3

REPORT INFORMATION
  Report Type: 
  Country: None (occurrence: None)
  Receive Date: 20050914
  Receipt Date: 20050401
  Transmission Date: 20060218
  Serious: Yes (Other)
  Sender: FDA-Public Use
  Company Number: 163-20785-05040249

PATIENT
  Sex: Male

DRUGS (2)
  1. THALIDOMIDE OR PLACEBO (THALIDOMIDE) (CAPSULES) [Suspect]
     Indication: PROSTATIC INTRAEPITHELIAL NEOPLASIA
     Dosage: 200MG OR PLACEBO TILL PSA PROGRESSOIN, QD, ORAL
     Route: 048
     Dates: start: 20020508
  2. LEUPROLIDE (L) OR GOSERELIN (G) (UNKNOWN) [Suspect]
     Indication: PROSTATIC INTRAEPITHELIAL NEOPLASIA
     Dosage: SEE IMAGE
     Route: 058
     Dates: start: 20020508

REACTIONS (6)
  - HYPERKALAEMIA [None]
  - NAUSEA [None]
  - SINUS BRADYCARDIA [None]
  - SYNCOPE [None]
  - VOMITING [None]
  - WEIGHT INCREASED [None]
